FAERS Safety Report 6703581-8 (Version None)
Quarter: 2010Q2

REPORT INFORMATION
  Report Type: 
  Country: None (occurrence: None)
  Receive Date: 20100430
  Receipt Date: 20100420
  Transmission Date: 20101027
  Serious: Yes (Other)
  Sender: FDA-Public Use
  Company Number: US-PFIZER INC-2009170043

PATIENT
  Sex: Male
  Weight: 80 kg

DRUGS (15)
  1. TIKOSYN [Suspect]
     Indication: ATRIAL FIBRILLATION
     Dosage: 500 MG, 2X/DAY
     Dates: start: 20040201
  2. TIKOSYN [Suspect]
     Indication: ATRIAL FLUTTER
  3. CARBIDOPA AND LEVODOPA [Suspect]
  4. CEFACLOR [Suspect]
     Indication: URINARY TRACT INFECTION
  5. WARFARIN SODIUM [Concomitant]
     Dosage: UNK
  6. ACETYLSALICYLIC ACID [Concomitant]
     Indication: ATRIAL FIBRILLATION
     Dosage: 81 MG, 1X/DAY
     Route: 048
  7. LEXAPRO [Concomitant]
     Indication: DEPRESSION
     Dosage: 10 MG, 1X/DAY
  8. LEXAPRO [Concomitant]
     Indication: ANXIETY
  9. AVODART [Concomitant]
     Indication: PROSTATOMEGALY
     Dosage: 0.5 MG, 1X/DAY
  10. ARICEPT [Concomitant]
     Dosage: UNK
  11. ZOCOR [Concomitant]
     Dosage: UNK
  12. MULTI-VITAMINS [Concomitant]
     Dosage: UNK
  13. SIMVASTATIN [Concomitant]
  14. VITAMIN E [Concomitant]
     Dosage: UNK
  15. VITAMIN C [Concomitant]
     Dosage: UNK

REACTIONS (11)
  - ATRIAL FIBRILLATION [None]
  - DEMENTIA WITH LEWY BODIES [None]
  - DRUG DOSE OMISSION [None]
  - DRUG TOXICITY [None]
  - DYSPHAGIA [None]
  - FALL [None]
  - FATIGUE [None]
  - GAIT DISTURBANCE [None]
  - NEUROPATHY PERIPHERAL [None]
  - URINARY TRACT INFECTION [None]
  - WEIGHT DECREASED [None]
